FAERS Safety Report 4864280-0 (Version None)
Quarter: 2005Q4

REPORT INFORMATION
  Report Type: 
  Country: None (occurrence: None)
  Receive Date: 20051222
  Receipt Date: 20051215
  Transmission Date: 20060501
  Serious: Yes (Hospitalization)
  Sender: FDA-Public Use
  Company Number: DK-AVENTIS-200521082GDDC

PATIENT
  Age: 62 Year
  Sex: Female
  Weight: 58 kg

DRUGS (2)
  1. TAXOTERE [Suspect]
     Dosage: DOSE: 118 MG
     Dates: start: 20050519, end: 20050519
  2. CARBOPLATIN [Suspect]
     Dosage: DOSE: 515 MG
     Route: 042
     Dates: start: 20050519, end: 20050519

REACTIONS (2)
  - CHOLELITHIASIS [None]
  - LEUKOPENIA [None]
